FAERS Safety Report 7748337-2 (Version None)
Quarter: 2011Q3

REPORT INFORMATION
  Report Type: 
  Country: None (occurrence: None)
  Receive Date: 20110913
  Receipt Date: 20110906
  Transmission Date: 20111222
  Serious: Yes (Other)
  Sender: FDA-Public Use
  Company Number: PHHY2011JP79980

PATIENT
  Sex: Male
  Weight: 65 kg

DRUGS (8)
  1. RABEPRAZOLE SODIUM [Concomitant]
     Indication: METASTATIC RENAL CELL CARCINOMA
     Dosage: 10 MG, UNK
     Route: 048
  2. AFINITOR [Suspect]
     Indication: METASTATIC RENAL CELL CARCINOMA
     Dosage: 10 MG, DAILY
     Route: 048
     Dates: start: 20110812, end: 20110819
  3. GEMZAR [Concomitant]
     Indication: METASTATIC RENAL CELL CARCINOMA
     Dosage: 2000 MG, / M2
     Dates: start: 20101130, end: 20110125
  4. DOXORUBICIN HYDROCHLORIDE [Concomitant]
     Indication: METASTATIC RENAL CELL CARCINOMA
     Dosage: 50 MG,/ M2
     Dates: start: 20101130, end: 20110125
  5. SORAFENIB TOSILATE [Concomitant]
     Indication: METASTATIC RENAL CELL CARCINOMA
     Dosage: 800 MG, UNK
     Route: 048
     Dates: start: 20110223, end: 20110730
  6. AMLODIPINE [Concomitant]
     Indication: METASTATIC RENAL CELL CARCINOMA
     Dosage: 5 MG, UNK
     Route: 048
  7. MAGMITT [Concomitant]
     Indication: METASTATIC RENAL CELL CARCINOMA
     Dosage: 330 MG, UNK
     Route: 048
  8. DIOVAN [Concomitant]
     Indication: METASTATIC RENAL CELL CARCINOMA
     Dosage: 80 MG, UNK
     Route: 048

REACTIONS (3)
  - HAEMOGLOBIN DECREASED [None]
  - C-REACTIVE PROTEIN INCREASED [None]
  - PLATELET COUNT DECREASED [None]
